FAERS Safety Report 20815848 (Version 1)
Quarter: 2022Q2

REPORT INFORMATION
  Report Type: Spontaneous
  Country: US (occurrence: US)
  Receive Date: 20220511
  Receipt Date: 20220511
  Transmission Date: 20220720
  Serious: No
  Sender: FDA-Public Use
  Company Number: US-PFIZER INC-202200004316

PATIENT
  Age: 49 Year
  Sex: Female

DRUGS (2)
  1. XELJANZ XR [Suspect]
     Active Substance: TOFACITINIB CITRATE
     Dosage: 11 MG
     Dates: start: 20211214
  2. XELJANZ XR [Suspect]
     Active Substance: TOFACITINIB CITRATE
     Dosage: 11 MG
     Dates: start: 20211217, end: 20220112

REACTIONS (8)
  - Decreased appetite [Unknown]
  - Diarrhoea [Unknown]
  - Insomnia [Unknown]
  - Hepatic enzyme increased [Unknown]
  - Malaise [Unknown]
  - Musculoskeletal stiffness [Unknown]
  - Pain [Unknown]
  - Feeling hot [Unknown]

NARRATIVE: CASE EVENT DATE: 20220111
